FAERS Safety Report 5390448-3 (Version None)
Quarter: 2007Q3

REPORT INFORMATION
  Report Type: 
  Country: None (occurrence: None)
  Receive Date: 20070718
  Receipt Date: 20060606
  Transmission Date: 20080115
  Serious: No
  Sender: FDA-Public Use
  Company Number: US-KINGPHARMUSA00001-K200600737

PATIENT

DRUGS (1)
  1. LEVOXYL [Suspect]
     Dosage: 100 MCG, UNK
     Dates: start: 20060401

REACTIONS (1)
  - RASH [None]
